FAERS Safety Report 9050306 (Version 1)
Quarter: 2013Q1

REPORT INFORMATION
  Report Type: Spontaneous
  Country: FR (occurrence: FR)
  Receive Date: 20130205
  Receipt Date: 20130205
  Transmission Date: 20140127
  Serious: Yes (Hospitalization)
  Sender: FDA-Public Use
  Company Number: PHHY2013FR008950

PATIENT
  Age: 64 Year
  Sex: Female

DRUGS (6)
  1. VOLTARENE [Suspect]
     Indication: BACK PAIN
     Dosage: UNK UKN, UNK
     Route: 048
     Dates: start: 20121117, end: 20121117
  2. KETOPROFENE [Suspect]
     Indication: PAIN
     Dosage: 100 MG, BID
     Route: 048
     Dates: start: 20121118, end: 20121120
  3. DOLIPRANE [Concomitant]
     Indication: BACK PAIN
     Dosage: UNK UKN, UNK
     Dates: start: 20121117
  4. MOPROL [Concomitant]
     Dosage: UNK UKN, UNK
     Dates: start: 20121118
  5. PANOS [Concomitant]
     Dosage: 1 DF, QD
     Dates: start: 20121118
  6. DAFALGAN CODEINE [Concomitant]
     Dosage: 6 DF, QD
     Dates: start: 20121118

REACTIONS (9)
  - Arthritis infective [Recovering/Resolving]
  - Systemic inflammatory response syndrome [Recovering/Resolving]
  - Oedema peripheral [Recovering/Resolving]
  - Erysipelas [Recovering/Resolving]
  - Intertrigo [Recovering/Resolving]
  - Body temperature increased [Recovering/Resolving]
  - Erythema [Recovering/Resolving]
  - Muscle abscess [Recovering/Resolving]
  - Staphylococcal abscess [Recovering/Resolving]
